FAERS Safety Report 8224724-3 (Version None)
Quarter: 2012Q1

REPORT INFORMATION
  Report Type: 
  Country: None (occurrence: None)
  Receive Date: 20120320
  Receipt Date: 20120320
  Transmission Date: 20120608
  Serious: Yes (Hospitalization)
  Sender: FDA-Public Use
  Company Number: None

PATIENT
  Age: 36 Year
  Sex: Male
  Weight: 79 kg

DRUGS (4)
  1. NEURONTIN [Concomitant]
  2. PRIVIGEN [Suspect]
     Indication: IMMUNE TOLERANCE INDUCTION
     Dosage: 140 GM ONCE IVPB
     Route: 042
     Dates: start: 20120313
  3. PRIVIGEN [Suspect]
  4. CYMBALTA [Concomitant]

REACTIONS (5)
  - OEDEMA PERIPHERAL [None]
  - VENOUS THROMBOSIS [None]
  - DYSPNOEA [None]
  - RASH [None]
  - URTICARIA [None]
